FAERS Safety Report 15325591 (Version 1)
Quarter: 2018Q3

REPORT INFORMATION
  Report Type: Spontaneous
  Country: US (occurrence: US)
  Receive Date: 20180822
  Receipt Date: 20180822
  Transmission Date: 20181010
  Serious: No
  Sender: FDA-Public Use
  Company Number: None

PATIENT
  Age: 60 Year
  Sex: Female

DRUGS (6)
  1. ATORVASTATIN [Concomitant]
     Active Substance: ATORVASTATIN
  2. A?HYDROCORT [Concomitant]
     Active Substance: HYDROCORTISONE SODIUM SUCCINATE
  3. OCALIVA [Suspect]
     Active Substance: OBETICHOLIC ACID
     Indication: PRIMARY BILIARY CHOLANGITIS
     Route: 048
     Dates: start: 20161123
  4. FLUTICASONE. [Concomitant]
     Active Substance: FLUTICASONE
  5. URSODIOL. [Concomitant]
     Active Substance: URSODIOL
  6. CEVIMELINE. [Concomitant]
     Active Substance: CEVIMELINE

REACTIONS (1)
  - Pruritus [None]
